FAERS Safety Report 16380659 (Version 2)
Quarter: 2019Q2

REPORT INFORMATION
  Report Type: Spontaneous
  Country: US (occurrence: US)
  Receive Date: 20190601
  Receipt Date: 20190607
  Transmission Date: 20190711
  Serious: Yes (Life-Threatening, Hospitalization, Other)
  Sender: FDA-Public Use
  Company Number: US-ACCORD-051211

PATIENT
  Age: 70 Year
  Sex: Female

DRUGS (9)
  1. DEXAMETHASONE. [Concomitant]
     Active Substance: DEXAMETHASONE
  2. TACROLIMUS. [Suspect]
     Active Substance: TACROLIMUS
     Indication: IMMUNOSUPPRESSANT DRUG THERAPY
  3. TEMOZOLOMIDE. [Concomitant]
     Active Substance: TEMOZOLOMIDE
  4. ANTITHYMOCYTE IMMUNOGLOBULIN [Suspect]
     Active Substance: THYMOCYTE IMMUNE GLOBULIN NOS
     Indication: IMMUNOSUPPRESSANT DRUG THERAPY
  5. FOLINIC ACID [Concomitant]
     Active Substance: LEUCOVORIN
     Dosage: 0.1 G/M2
  6. MYCOPHENOLIC ACID. [Suspect]
     Active Substance: MYCOPHENOLIC ACID
     Indication: IMMUNOSUPPRESSANT DRUG THERAPY
     Dosage: ALSO RECEIVED 500 MG IN 12 HOURS
  7. PREDNISONE. [Suspect]
     Active Substance: PREDNISONE
     Indication: IMMUNOSUPPRESSANT DRUG THERAPY
  8. METHOTREXATE. [Suspect]
     Active Substance: METHOTREXATE
     Indication: CENTRAL NERVOUS SYSTEM LYMPHOMA
     Dosage: 4 G/M2 (INITIATED ON DAY 641)
  9. RITUXIMAB. [Concomitant]
     Active Substance: RITUXIMAB

REACTIONS (10)
  - Drug clearance decreased [Unknown]
  - Post transplant lymphoproliferative disorder [Recovered/Resolved]
  - Central nervous system lesion [Recovered/Resolved]
  - Nephropathy toxic [Recovering/Resolving]
  - Haemorrhagic stroke [Recovered/Resolved]
  - Off label use [Unknown]
  - Diffuse large B-cell lymphoma [Recovered/Resolved]
  - Brain oedema [Recovered/Resolved]
  - Acute kidney injury [Unknown]
  - Muscular weakness [Recovered/Resolved]
